FAERS Safety Report 5943607-2 (Version None)
Quarter: 2008Q4

REPORT INFORMATION
  Report Type: 
  Country: None (occurrence: None)
  Receive Date: 20081106
  Receipt Date: 20081027
  Transmission Date: 20090506
  Serious: Yes (Other)
  Sender: FDA-Public Use
  Company Number: BR-WYE-H06553208

PATIENT
  Sex: Female
  Weight: 45 kg

DRUGS (1)
  1. EFFEXOR XR [Suspect]
     Indication: FIBROMYALGIA
     Dosage: 75 MG EVERY 1 TOT
     Route: 048
     Dates: start: 20081022, end: 20081022

REACTIONS (6)
  - BLOOD PRESSURE FLUCTUATION [None]
  - BURNING SENSATION [None]
  - CONFUSIONAL STATE [None]
  - CRYING [None]
  - FEAR [None]
  - FEELING HOT [None]
